FAERS Safety Report 6156271-7 (Version None)
Quarter: 2009Q2

REPORT INFORMATION
  Report Type: 
  Country: None (occurrence: None)
  Receive Date: 20090413
  Receipt Date: 20090413
  Transmission Date: 20091009
  Serious: Yes (Life-Threatening)
  Sender: FDA-Public Use
  Company Number: None

PATIENT
  Age: 56 Year
  Sex: Female
  Weight: 72 kg

DRUGS (1)
  1. DROTRECOGIN ALFA 15MG LILLY [Suspect]
     Indication: SEPTIC SHOCK
     Dosage: 24 MCG/KG PER HOUR IV
     Route: 042
     Dates: start: 20090322, end: 20090325

REACTIONS (4)
  - HAEMORRHAGE INTRACRANIAL [None]
  - INFUSION RELATED REACTION [None]
  - MENTAL STATUS CHANGES [None]
  - SUBDURAL HAEMATOMA [None]
